FAERS Safety Report 7066860-3 (Version None)
Quarter: 2010Q4

REPORT INFORMATION
  Report Type: 
  Country: None (occurrence: None)
  Receive Date: 20101027
  Receipt Date: 20100929
  Transmission Date: 20110411
  Serious: No
  Sender: FDA-Public Use
  Company Number: US-WYE-H17879510

PATIENT
  Sex: Female
  Weight: 62.65 kg

DRUGS (9)
  1. PREMPRO [Suspect]
     Indication: HOT FLUSH
     Dosage: 0.45/1.5 MG DAILY
     Route: 048
     Dates: start: 20040101, end: 20100901
  2. PREMPRO [Suspect]
     Dosage: 0.45/1.5 MG DAILY
     Route: 048
     Dates: start: 20100901, end: 20100924
  3. ADVAIR DISKUS 100/50 [Concomitant]
  4. ONE-A-DAY [Concomitant]
  5. FLONASE [Concomitant]
  6. PREDNISONE [Concomitant]
  7. TRIAMTERENE AND HYDROCHLOROTHIAZIDE [Concomitant]
  8. SPIRIVA [Concomitant]
  9. LEVOTHYROXINE [Concomitant]

REACTIONS (3)
  - ASTHENIA [None]
  - FATIGUE [None]
  - PRODUCT QUALITY ISSUE [None]
